FAERS Safety Report 4684324-9 (Version None)
Quarter: 2005Q2

REPORT INFORMATION
  Report Type: 
  Country: None (occurrence: None)
  Receive Date: 20050607
  Receipt Date: 20050516
  Transmission Date: 20051028
  Serious: Yes (Hospitalization)
  Sender: FDA-Public Use
  Company Number: 2005AC00756

PATIENT
  Age: 74 Year
  Sex: Female

DRUGS (5)
  1. FASLODEX [Suspect]
     Indication: BREAST CANCER
     Route: 030
     Dates: start: 20050301, end: 20050315
  2. FASLODEX [Suspect]
     Route: 030
     Dates: start: 20050415
  3. ENALAPRIL MALEATE [Concomitant]
     Indication: HYPERTENSION
     Route: 048
     Dates: end: 20050416
  4. NOLOTIL [Concomitant]
     Indication: PAIN
     Route: 048
  5. PANTECTA [Concomitant]
     Indication: PROPHYLAXIS
     Route: 048

REACTIONS (1)
  - PULMONARY EMBOLISM [None]
